FAERS Safety Report 6629003-3 (Version None)
Quarter: 2010Q1

REPORT INFORMATION
  Report Type: 
  Country: None (occurrence: None)
  Receive Date: 20100311
  Receipt Date: 20100106
  Transmission Date: 20100710
  Serious: No
  Sender: FDA-Public Use
  Company Number: US-BIOGENIDEC-2009BI025076

PATIENT
  Age: 33 Year
  Sex: Female

DRUGS (2)
  1. AVONEX [Suspect]
     Indication: MULTIPLE SCLEROSIS
     Route: 030
     Dates: start: 20090303, end: 20090101
  2. AVONEX [Suspect]
     Route: 030
     Dates: start: 20090101, end: 20090101

REACTIONS (6)
  - ACARODERMATITIS [None]
  - HYPERSENSITIVITY [None]
  - MIGRAINE [None]
  - PRURITUS [None]
  - RASH PAPULAR [None]
  - URTICARIA [None]
